FAERS Safety Report 9805732 (Version 2)
Quarter: 2016Q1

REPORT INFORMATION
  Report Type: Spontaneous
  Country: US (occurrence: US)
  Receive Date: 20140109
  Receipt Date: 20160316
  Transmission Date: 20160526
  Serious: No
  Sender: FDA-Public Use
  Company Number: US-009507513-1401USA002516

PATIENT
  Age: 70 Year
  Sex: Male

DRUGS (4)
  1. VICTRELIS [Suspect]
     Active Substance: BOCEPREVIR
     Indication: HEPATITIS C
     Dosage: 800 MG, TID (4 CAPSULES, 3 TIMES A DAY)
     Route: 048
     Dates: start: 201312
  2. COPEGUS [Suspect]
     Active Substance: RIBAVIRIN
     Indication: CHRONIC HEPATITIS C
     Dosage: 3 CAPS TWO TIMES A DAY (200 MG, 3 IN 12 HR)
     Route: 048
     Dates: start: 201312
  3. COPEGUS [Suspect]
     Active Substance: RIBAVIRIN
     Dosage: 3 CAPS TWO TIMES A DAY (600 MG, BID)
     Route: 048
  4. PEGASYS [Suspect]
     Active Substance: PEGINTERFERON ALFA-2A
     Indication: CHRONIC HEPATITIS C
     Dosage: 0.5 ML, QW (PROCLICK) (180 MICROGRAM, 1 IN 1 WEEK)
     Route: 058
     Dates: start: 201312

REACTIONS (4)
  - Listless [Recovering/Resolving]
  - Influenza [Recovered/Resolved]
  - Anaemia [Not Recovered/Not Resolved]
  - Asthenia [Recovering/Resolving]

NARRATIVE: CASE EVENT DATE: 201312
